FAERS Safety Report 8159852-4 (Version None)
Quarter: 2012Q1

REPORT INFORMATION
  Report Type: 
  Country: None (occurrence: None)
  Receive Date: 20120223
  Receipt Date: 20120217
  Transmission Date: 20120608
  Serious: Yes (Hospitalization)
  Sender: FDA-Public Use
  Company Number: US-GILEAD-2011-0047562

PATIENT
  Sex: Male

DRUGS (10)
  1. LETAIRIS [Suspect]
     Indication: PULMONARY HYPERTENSION
     Dosage: 5 MG, UNK
     Route: 048
     Dates: start: 20111115, end: 20111130
  2. METFORMIN HCL [Concomitant]
  3. PLAVIX [Concomitant]
  4. COREG [Concomitant]
  5. XANAX [Concomitant]
  6. BENICAR HCT [Concomitant]
  7. HYDRALAZINE HCL [Concomitant]
  8. ZOCOR [Concomitant]
  9. ZOLOFT [Concomitant]
  10. ASPIRIN [Concomitant]

REACTIONS (2)
  - CEREBROVASCULAR ACCIDENT [None]
  - VISUAL FIELD DEFECT [None]
